FAERS Safety Report 24089851 (Version 1)
Quarter: 2024Q3

REPORT INFORMATION
  Report Type: Spontaneous
  Country: US (occurrence: US)
  Receive Date: 20240715
  Receipt Date: 20240715
  Transmission Date: 20241016
  Serious: No
  Sender: TG THERAPEUTICS
  Company Number: US-TG THERAPEUTICS INC.-TGT003498

PATIENT

DRUGS (3)
  1. BRIUMVI [Suspect]
     Active Substance: UBLITUXIMAB-XIIY
     Indication: Multiple sclerosis
     Dosage: UNK
     Route: 042
  2. BRIUMVI [Suspect]
     Active Substance: UBLITUXIMAB-XIIY
     Dosage: UNK
     Route: 042
  3. BRIUMVI [Suspect]
     Active Substance: UBLITUXIMAB-XIIY
     Dosage: UNK
     Route: 042

REACTIONS (6)
  - Influenza [Not Recovered/Not Resolved]
  - Chills [Not Recovered/Not Resolved]
  - Headache [Not Recovered/Not Resolved]
  - Asthenia [Not Recovered/Not Resolved]
  - Vomiting [Not Recovered/Not Resolved]
  - Drug ineffective [Not Recovered/Not Resolved]
